FAERS Safety Report 18373948 (Version 2)
Quarter: 2020Q4

REPORT INFORMATION
  Report Type: Spontaneous
  Country: JP (occurrence: JP)
  Receive Date: 20201013
  Receipt Date: 20201021
  Transmission Date: 20210114
  Serious: No
  Sender: FDA-Public Use
  Company Number: JP-BAUSCH-BL-2020-029512

PATIENT
  Age: 33 Year
  Sex: Female
  Weight: 71.3 kg

DRUGS (12)
  1. LIRAGLUTIDE [Suspect]
     Active Substance: LIRAGLUTIDE
     Indication: PRODUCT USED FOR UNKNOWN INDICATION
     Route: 065
  2. CABERGOLINE. [Concomitant]
     Active Substance: CABERGOLINE
     Indication: AMENORRHOEA
  3. METHYLPREDNISOLONE. [Suspect]
     Active Substance: METHYLPREDNISOLONE
     Indication: HYPOTHALAMO-PITUITARY DISORDER
     Dosage: 3 CYCLES, PULSE TREATMENT
     Route: 042
  4. LEVOTHYROXINE. [Concomitant]
     Active Substance: LEVOTHYROXINE
     Indication: HORMONE REPLACEMENT THERAPY
     Route: 065
  5. PREDNISOLONE. [Suspect]
     Active Substance: PREDNISOLONE
     Indication: HYPOTHALAMO-PITUITARY DISORDER
     Route: 048
  6. PREDNISOLONE. [Suspect]
     Active Substance: PREDNISOLONE
     Dosage: GRADUALLY TAPERED
     Route: 048
  7. DESMOPRESSIN ACETATE. [Concomitant]
     Active Substance: DESMOPRESSIN ACETATE
     Indication: HORMONE REPLACEMENT THERAPY
  8. ESTRADIOL;MEDROXYPROGESTERONE [Suspect]
     Active Substance: ESTRADIOL\MEDROXYPROGESTERONE
     Indication: HYPOTHALAMO-PITUITARY DISORDER
     Route: 065
  9. METFORMIN [Suspect]
     Active Substance: METFORMIN HYDROCHLORIDE
     Indication: PRODUCT USED FOR UNKNOWN INDICATION
     Route: 065
  10. LIRAGLUTIDE [Suspect]
     Active Substance: LIRAGLUTIDE
     Route: 065
  11. HYDROCORTISONE. [Suspect]
     Active Substance: HYDROCORTISONE
     Route: 065
  12. HYDROCORTISONE. [Suspect]
     Active Substance: HYDROCORTISONE
     Indication: HORMONE REPLACEMENT THERAPY
     Route: 065

REACTIONS (4)
  - Glucose tolerance impaired [Unknown]
  - Therapeutic product effect incomplete [Unknown]
  - Condition aggravated [Recovering/Resolving]
  - Hepatic steatosis [Recovering/Resolving]
